FAERS Safety Report 4966149-X (Version None)
Quarter: 2006Q2

REPORT INFORMATION
  Report Type: 
  Country: None (occurrence: None)
  Receive Date: 20060407
  Receipt Date: 20060329
  Transmission Date: 20061013
  Serious: Yes (Hospitalization)
  Sender: FDA-Public Use
  Company Number: 2006UW05571

PATIENT
  Sex: Male

DRUGS (1)
  1. SEROQUEL [Suspect]
     Route: 048

REACTIONS (7)
  - CONFUSIONAL STATE [None]
  - DISORIENTATION [None]
  - HYPOTENSION [None]
  - MUSCLE ATROPHY [None]
  - NEUROLEPTIC MALIGNANT SYNDROME [None]
  - RENAL FAILURE [None]
  - VISUAL DISTURBANCE [None]
